FAERS Safety Report 7757020-9 (Version None)
Quarter: 2011Q3

REPORT INFORMATION
  Report Type: 
  Country: None (occurrence: None)
  Receive Date: 20110916
  Receipt Date: 20110913
  Transmission Date: 20111222
  Serious: Yes (Hospitalization, Other)
  Sender: FDA-Public Use
  Company Number: DE-ROXANE LABORATORIES, INC.-2011-RO-01265RO

PATIENT
  Age: 65 Year
  Sex: Female

DRUGS (8)
  1. AZATHIOPRINE [Suspect]
  2. TRIMETHOPRIM + SULFAMETHOXAZOLE [Suspect]
     Indication: ANTIFUNGAL PROPHYLAXIS
  3. METHOTREXATE [Suspect]
  4. 2-MERCAPTOETHANESULFONIC ACID [Suspect]
  5. METHOTREXATE [Suspect]
     Indication: TEMPORAL ARTERITIS
  6. CYCLOPHOSPHAMIDE [Suspect]
     Indication: TEMPORAL ARTERITIS
  7. AZATHIOPRINE [Suspect]
     Indication: TEMPORAL ARTERITIS
  8. CYCLOPHOSPHAMIDE [Suspect]

REACTIONS (3)
  - URINARY TRACT INFECTION [None]
  - NEUTROPENIA [None]
  - INFECTION REACTIVATION [None]
